FAERS Safety Report 13994554 (Version 1)
Quarter: 2017Q3

REPORT INFORMATION
  Report Type: Spontaneous
  Country: FR (occurrence: FR)
  Receive Date: 20170920
  Receipt Date: 20170920
  Transmission Date: 20171128
  Serious: Yes (Hospitalization)
  Sender: FDA-Public Use
  Company Number: FR-MERCK KGAA-2027036

PATIENT
  Age: 67 Year
  Sex: Female

DRUGS (2)
  1. NOVOTHYROX [Suspect]
     Active Substance: LEVOTHYROXINE SODIUM
     Indication: THYROID DISORDER
     Route: 065
     Dates: start: 1995
  2. NOVOTHYROX [Suspect]
     Active Substance: LEVOTHYROXINE SODIUM
     Route: 065
     Dates: start: 2017

REACTIONS (10)
  - Thyroid disorder [None]
  - Headache [None]
  - Abdominal distension [None]
  - Syncope [None]
  - Dizziness [None]
  - Palpitations [None]
  - Insomnia [None]
  - Hot flush [None]
  - Fatigue [None]
  - Swelling [None]

NARRATIVE: CASE EVENT DATE: 201701
